FAERS Safety Report 22645689 (Version 4)
Quarter: 2024Q1

REPORT INFORMATION
  Report Type: Spontaneous
  Country: US (occurrence: US)
  Receive Date: 20230627
  Receipt Date: 20240304
  Transmission Date: 20240409
  Serious: Yes (Hospitalization, Other)
  Sender: FDA-Public Use
  Company Number: US-PFIZER INC-2020472882

PATIENT
  Age: 92 Year
  Sex: Male
  Weight: 68.95 kg

DRUGS (1)
  1. VYNDAMAX [Suspect]
     Active Substance: TAFAMIDIS
     Indication: Cardiac amyloidosis
     Dosage: 61 MG, 1X/DAY
     Route: 048
     Dates: start: 2020

REACTIONS (4)
  - Cardiac failure congestive [Unknown]
  - Cellulitis [Unknown]
  - Product dose omission in error [Unknown]
  - Hypoacusis [Unknown]
